FAERS Safety Report 20811643 (Version 4)
Quarter: 2022Q3

REPORT INFORMATION
  Report Type: Spontaneous
  Country: US (occurrence: US)
  Receive Date: 20220510
  Receipt Date: 20220818
  Transmission Date: 20221027
  Serious: No
  Sender: FDA-Public Use
  Company Number: US-BEH-2022145066

PATIENT
  Age: 31 Year
  Sex: Female

DRUGS (2)
  1. HAEGARDA [Suspect]
     Active Substance: HUMAN C1-ESTERASE INHIBITOR
     Indication: Hereditary angioedema
     Dosage: 4000 INTERNATIONAL UNIT, BIW
     Route: 058
     Dates: start: 20211007
  2. HAEGARDA [Suspect]
     Active Substance: HUMAN C1-ESTERASE INHIBITOR
     Indication: Prophylaxis
     Dosage: 4000 INTERNATIONAL UNIT, BIW
     Route: 058
     Dates: start: 202110

REACTIONS (10)
  - Abdominal discomfort [Recovered/Resolved]
  - Maternal exposure during pregnancy [Recovered/Resolved]
  - Abdominal pain upper [Unknown]
  - Maternal exposure during pregnancy [Unknown]
  - Abdominal rigidity [Unknown]
  - Maternal exposure during pregnancy [Unknown]
  - Fear of pregnancy [Unknown]
  - Maternal exposure during pregnancy [Unknown]
  - Sensitive skin [Unknown]
  - Maternal exposure during pregnancy [Unknown]

NARRATIVE: CASE EVENT DATE: 20220410
